APPROVED DRUG PRODUCT: DEXAMETHASONE
Active Ingredient: DEXAMETHASONE
Strength: 1MG
Dosage Form/Route: TABLET;ORAL
Application: A216284 | Product #001 | TE Code: AB
Applicant: ZYDUS LIFESCIENCES LTD
Approved: May 9, 2024 | RLD: No | RS: No | Type: RX